FAERS Safety Report 7944154-9 (Version None)
Quarter: 2011Q4

REPORT INFORMATION
  Report Type: 
  Country: None (occurrence: None)
  Receive Date: 20111129
  Receipt Date: 20111121
  Transmission Date: 20120403
  Serious: Yes (Hospitalization)
  Sender: FDA-Public Use
  Company Number: DE-AMGEN-DEUCT2011059540

PATIENT
  Sex: Male

DRUGS (8)
  1. PANTOZOL                           /01263204/ [Concomitant]
     Dosage: 20 UNK, UNK
  2. NOVAMINOSULFON [Concomitant]
     Dosage: UNK
     Route: 048
  3. ETANERCEPT [Suspect]
     Indication: RHEUMATOID ARTHRITIS
     Dosage: 50 MG, UNK
     Dates: start: 20091101
  4. METHOTREXATE SODIUM [Concomitant]
     Indication: RHEUMATOID ARTHRITIS
     Dosage: 15 MG, WEEKLY
     Dates: start: 20081101
  5. CAPTOHEXAL [Concomitant]
     Dosage: 50 UNK, UNK
  6. DICLOFENAC SODIUM [Concomitant]
     Dosage: 75 UNK, UNK
  7. FELODIPINE [Concomitant]
     Dosage: 5 UNK, UNK
  8. BISOPROLOL FUMARATE [Concomitant]
     Dosage: 10 UNK, UNK

REACTIONS (1)
  - FISTULA DISCHARGE [None]
